FAERS Safety Report 6014565-X (Version None)
Quarter: 2008Q4

REPORT INFORMATION
  Report Type: 
  Country: None (occurrence: None)
  Receive Date: 20081219
  Receipt Date: 20081201
  Transmission Date: 20090506
  Serious: No
  Sender: FDA-Public Use
  Company Number: A0743738A

PATIENT
  Age: 72 Year
  Sex: Male
  Weight: 84.1 kg

DRUGS (5)
  1. AVODART [Suspect]
     Indication: BENIGN PROSTATIC HYPERPLASIA
     Dosage: .5MG PER DAY
     Route: 048
     Dates: start: 20080601, end: 20080601
  2. FLEXERIL [Concomitant]
  3. AMBIEN [Concomitant]
     Indication: INSOMNIA
     Dosage: 10MG AT NIGHT
     Route: 048
  4. ZESTORETIC [Concomitant]
     Indication: HYPERTENSION
     Route: 048
  5. PROZAC [Concomitant]

REACTIONS (4)
  - DRUG INEFFECTIVE [None]
  - PROSTATIC SPECIFIC ANTIGEN INCREASED [None]
  - PRURITUS GENERALISED [None]
  - RASH [None]
